FAERS Safety Report 10206051 (Version 1)
Quarter: 2014Q2

REPORT INFORMATION
  Report Type: Spontaneous
  Country: US (occurrence: US)
  Receive Date: 20140530
  Receipt Date: 20140530
  Transmission Date: 20141212
  Serious: No
  Sender: FDA-Public Use
  Company Number: US-PFIZER INC-2014148643

PATIENT
  Age: 83 Year
  Sex: Female
  Weight: 58.05 kg

DRUGS (2)
  1. LYRICA [Suspect]
     Indication: NERVE INJURY
     Dosage: 75 MG, 2X/DAY
  2. LYRICA [Suspect]
     Indication: PAIN

REACTIONS (2)
  - Musculoskeletal pain [Unknown]
  - Herpes zoster [Unknown]
